FAERS Safety Report 4422660-1 (Version None)
Quarter: 2004Q3

REPORT INFORMATION
  Report Type: 
  Country: None (occurrence: None)
  Receive Date: 20040810
  Receipt Date: 20040804
  Transmission Date: 20050211
  Serious: Yes (Other)
  Sender: FDA-Public Use
  Company Number: PR-MERCK-0408USA00278

PATIENT
  Sex: Male

DRUGS (2)
  1. CANCIDAS [Suspect]
     Indication: FUNGAL INFECTION
     Route: 065
  2. PRIMAXIN [Suspect]
     Route: 065

REACTIONS (2)
  - MUSCULAR WEAKNESS [None]
  - RESPIRATORY FAILURE [None]
